FAERS Safety Report 5564296-5 (Version None)
Quarter: 2007Q4

REPORT INFORMATION
  Report Type: 
  Country: None (occurrence: None)
  Receive Date: 20071218
  Receipt Date: 20071211
  Transmission Date: 20080405
  Serious: Yes (Death, Other)
  Sender: FDA-Public Use
  Company Number: PHBS2007SA20814

PATIENT

DRUGS (6)
  1. OCTREOTIDE ACETATE [Suspect]
     Indication: HEPATORENAL SYNDROME
     Dosage: 100 UG, Q8H
     Route: 065
  2. OCTREOTIDE ACETATE [Suspect]
     Dosage: 200 UG, TID
     Route: 065
  3. NORADRENALINE [Concomitant]
     Indication: HEPATORENAL SYNDROME
  4. ALBUMIN (HUMAN) [Concomitant]
     Indication: HEPATORENAL SYNDROME
     Dosage: 10 G, BID
     Route: 042
  5. DEXTROSE INFUSION FLUID 5% [Concomitant]
     Indication: HEPATORENAL SYNDROME
  6. SODIUM CHLORIDE 0.9% [Concomitant]
     Indication: HEPATORENAL SYNDROME

REACTIONS (3)
  - MECHANICAL VENTILATION [None]
  - PULMONARY OEDEMA [None]
  - SEPTIC SHOCK [None]
